FAERS Safety Report 15023826 (Version 1)
Quarter: 2018Q2

REPORT INFORMATION
  Report Type: Spontaneous
  Country: FI (occurrence: FI)
  Receive Date: 20180618
  Receipt Date: 20180618
  Transmission Date: 20180711
  Serious: Yes (Other)
  Sender: FDA-Public Use
  Company Number: FI-ROCHE-2140795

PATIENT

DRUGS (1)
  1. ROACTEMRA [Suspect]
     Active Substance: TOCILIZUMAB
     Indication: TEMPORAL ARTERITIS
     Route: 042

REACTIONS (5)
  - Intentional product use issue [Unknown]
  - Staphylococcal sepsis [Unknown]
  - Off label use [Unknown]
  - Fall [Unknown]
  - Ankle fracture [Unknown]
